FAERS Safety Report 4435348-8 (Version None)
Quarter: 2004Q3

REPORT INFORMATION
  Report Type: 
  Country: None (occurrence: None)
  Receive Date: 20040826
  Receipt Date: 20040826
  Transmission Date: 20050211
  Serious: Yes (Other)
  Sender: FDA-Public Use
  Company Number: None

PATIENT
  Age: 32 Year
  Sex: Male

DRUGS (2)
  1. SUN BATH PROTECTIVE TANNING LOTION [Suspect]
     Indication: PROPHYLAXIS
     Dosage: PRN TOPICAL
     Route: 061
     Dates: start: 20040423, end: 20040428
  2. SUN BATH PROTECTIVE TANNING LOTION [Suspect]
     Indication: SUNBURN
     Dosage: PRN TOPICAL
     Route: 061
     Dates: start: 20040423, end: 20040428

REACTIONS (7)
  - APPLICATION SITE ERYTHEMA [None]
  - APPLICATION SITE PRURITUS [None]
  - APPLICATION SITE REACTION [None]
  - APPLICATION SITE VESICLES [None]
  - MOBILITY DECREASED [None]
  - SKIN REACTION [None]
  - SKIN SWELLING [None]
